FAERS Safety Report 7261155-7 (Version None)
Quarter: 2011Q1

REPORT INFORMATION
  Report Type: 
  Country: None (occurrence: None)
  Receive Date: 20110130
  Receipt Date: 20100927
  Transmission Date: 20110831
  Serious: No
  Sender: FDA-Public Use
  Company Number: US-ABBOTT-10P-163-0674088-00

PATIENT
  Age: 58 Year
  Sex: Female

DRUGS (9)
  1. ALEVE [Concomitant]
     Indication: PAIN
  2. ADVIL [Concomitant]
     Indication: PAIN
  3. HUMIRA [Suspect]
  4. EXCEDRIN (MIGRAINE) [Concomitant]
     Indication: PAIN
  5. ADVIL PM [Concomitant]
     Indication: PRODUCT USED FOR UNKNOWN INDICATION
  6. BAYER [Concomitant]
     Indication: PRODUCT USED FOR UNKNOWN INDICATION
     Dosage: IN THE MORNING
  7. CIMZIA [Concomitant]
     Indication: PRODUCT USED FOR UNKNOWN INDICATION
  8. UNKNOWN EQUATE PAIN RELIEVER [Concomitant]
     Indication: INSOMNIA
     Dosage: AT BEDTIME
  9. HUMIRA [Suspect]
     Indication: RHEUMATOID ARTHRITIS

REACTIONS (11)
  - PAIN IN EXTREMITY [None]
  - BACK PAIN [None]
  - MUSCULOSKELETAL PAIN [None]
  - RASH [None]
  - NERVE INJURY [None]
  - INJECTION SITE ERYTHEMA [None]
  - ARTHRALGIA [None]
  - INTERVERTEBRAL DISC DEGENERATION [None]
  - INJECTION SITE SWELLING [None]
  - HYPOAESTHESIA [None]
  - INJECTION SITE INDURATION [None]
